FAERS Safety Report 7080329-1 (Version None)
Quarter: 2010Q4

REPORT INFORMATION
  Report Type: 
  Country: None (occurrence: None)
  Receive Date: 20101022
  Receipt Date: 20101008
  Transmission Date: 20110411
  Serious: Yes (Hospitalization, Other)
  Sender: FDA-Public Use
  Company Number: 017708

PATIENT
  Sex: Female
  Weight: 85 kg

DRUGS (10)
  1. CIMZIA [Suspect]
     Indication: RHEUMATOID ARTHRITIS
     Dosage: (200 MG 1X/2 WEEKS SUBCUTANEOUS)
     Route: 058
     Dates: start: 20100405, end: 20100801
  2. METHOTREXATE [Suspect]
     Indication: RHEUMATOID ARTHRITIS
     Dosage: (15 MG 1X/WEEK SUBCUTANEOUS)
     Route: 058
     Dates: start: 19870101, end: 20100801
  3. ASPIRIN [Concomitant]
  4. PLAVIX [Concomitant]
  5. METOPROLOL [Concomitant]
  6. RAMIPRIL [Concomitant]
  7. HCT [Concomitant]
  8. AMLODIPINE [Concomitant]
  9. PANTOZOL /01263202/ [Concomitant]
  10. FOLIC ACID [Concomitant]

REACTIONS (3)
  - ARTHRITIS BACTERIAL [None]
  - CELLULITIS [None]
  - EMPYEMA [None]
